FAERS Safety Report 12541676 (Version 13)
Quarter: 2017Q2

REPORT INFORMATION
  Report Type: Report from Study
  Country: RU (occurrence: RU)
  Receive Date: 20160708
  Receipt Date: 20170620
  Transmission Date: 20170830
  Serious: Yes (Death, Hospitalization)
  Sender: FDA-Public Use
  Company Number: RU-AMGEN-RUSCT2016087602

PATIENT
  Age: 27 Year
  Sex: Female
  Weight: 55 kg

DRUGS (14)
  1. PANANGIN [Concomitant]
     Active Substance: MAGNESIUM ASPARTATE\POTASSIUM ASPARTATE
     Dosage: 1 UNK, UNK
     Route: 048
     Dates: start: 20160513, end: 20160524
  2. INDOMETACINE [Concomitant]
     Active Substance: INDOMETHACIN
     Dosage: 25 MG, UNK
     Route: 048
     Dates: start: 20160609, end: 20160609
  3. TALIMOGENE LAHERPAREPVEC [Suspect]
     Active Substance: TALIMOGENE LAHERPAREPVEC
     Indication: MALIGNANT MELANOMA
     Dosage: 3 ML, UNK
     Route: 026
     Dates: start: 20160418, end: 20160621
  4. KETOPROFEN. [Concomitant]
     Active Substance: KETOPROFEN
     Dosage: 2 ML, UNK
     Route: 030
     Dates: start: 20160608, end: 20160608
  5. XEFOCAM [Concomitant]
     Dosage: 4 MG, UNK
     Route: 048
     Dates: start: 20160508, end: 20160509
  6. DEXAMETHASONE. [Concomitant]
     Active Substance: DEXAMETHASONE
     Dosage: 20 MG, UNK
     Route: 030
     Dates: start: 20160621, end: 20160621
  7. ANALGIN [Concomitant]
     Active Substance: METAMIZOLE SODIUM
     Dosage: 2 ML, UNK
     Route: 030
     Dates: start: 20160621, end: 20160621
  8. NO-SPA [Concomitant]
     Active Substance: DROTAVERINE HYDROCHLORIDE
     Dosage: 2 ML, UNK
     Route: 030
     Dates: start: 20160621, end: 20160621
  9. KETANOV [Concomitant]
     Active Substance: KETOROLAC\KETOROLAC TROMETHAMINE
     Dosage: 10 MG, UNK
     Route: 048
     Dates: start: 20160508, end: 20160509
  10. SUPRASTIN [Concomitant]
     Active Substance: CHLOROPYRAMINE HYDROCHLORIDE
     Dosage: 1- 2 ML, UNK
     Dates: start: 20160608, end: 20160621
  11. INFLIXIMAB [Concomitant]
     Active Substance: INFLIXIMAB
     Dosage: 260 MG, UNK
     Route: 042
     Dates: start: 20160119, end: 20160119
  12. PARACETAMOL [Concomitant]
     Active Substance: ACETAMINOPHEN
     Dosage: 500-1000 MG, UNK
     Route: 048
     Dates: start: 20160512, end: 20160621
  13. OMEPRAZOLE. [Concomitant]
     Active Substance: OMEPRAZOLE
     Dosage: 20-40 MG, UNK
     Route: 048
     Dates: start: 20160513, end: 20160722
  14. PREDNISOLONE. [Concomitant]
     Active Substance: PREDNISOLONE
     Dosage: 10-30  MG, UNK
     Route: 048
     Dates: start: 20160512, end: 20160722

REACTIONS (3)
  - Pleural effusion [Fatal]
  - Cytokine release syndrome [Fatal]
  - Metastases to pleura [Fatal]

NARRATIVE: CASE EVENT DATE: 20160701
